FAERS Safety Report 6207897-3 (Version None)
Quarter: 2009Q2

REPORT INFORMATION
  Report Type: 
  Country: None (occurrence: None)
  Receive Date: 20090529
  Receipt Date: 20090527
  Transmission Date: 20091009
  Serious: Yes (Other)
  Sender: FDA-Public Use
  Company Number: FR-WYE-G03750809

PATIENT
  Age: 65 Year
  Sex: Female

DRUGS (2)
  1. TORISEL [Suspect]
     Indication: NEOPLASM MALIGNANT
     Dosage: UNKNOWN
     Route: 042
     Dates: start: 20090201, end: 20090501
  2. TORISEL [Suspect]
     Indication: METASTASIS

REACTIONS (1)
  - ALVEOLITIS ALLERGIC [None]
